FAERS Safety Report 13112898 (Version 1)
Quarter: 2017Q1

REPORT INFORMATION
  Report Type: Spontaneous
  Country: US (occurrence: US)
  Receive Date: 20170112
  Receipt Date: 20170112
  Transmission Date: 20170428
  Serious: No
  Sender: FDA-Public Use
  Company Number: None

PATIENT
  Age: 49 Year
  Sex: Female

DRUGS (1)
  1. HUMIRA [Suspect]
     Active Substance: ADALIMUMAB
     Route: 058
     Dates: start: 20120917

REACTIONS (4)
  - Arthralgia [None]
  - Neuralgia [None]
  - Back pain [None]
  - Post procedural complication [None]

NARRATIVE: CASE EVENT DATE: 20170111
